FAERS Safety Report 8051221-0 (Version None)
Quarter: 2012Q1

REPORT INFORMATION
  Report Type: 
  Country: None (occurrence: None)
  Receive Date: 20120117
  Receipt Date: 20120112
  Transmission Date: 20120608
  Serious: Yes (Other)
  Sender: FDA-Public Use
  Company Number: US-ROXANE LABORATORIES, INC.-2012-RO-00469RO

PATIENT
  Age: 58 Year
  Sex: Male

DRUGS (5)
  1. FLECAINIDE ACETATE [Suspect]
     Indication: ATRIAL FLUTTER
     Dosage: 100 MG
  2. FLECAINIDE ACETATE [Suspect]
  3. FLECAINIDE ACETATE [Suspect]
  4. SOTALOL HCL [Suspect]
     Indication: ATRIAL FLUTTER
  5. SIMVACOR [Concomitant]
     Indication: HYPERLIPIDAEMIA

REACTIONS (3)
  - ATRIAL FLUTTER [None]
  - ATRIAL FIBRILLATION [None]
  - ELECTROCARDIOGRAM ABNORMAL [None]
